FAERS Safety Report 4759160-5 (Version None)
Quarter: 2005Q3

REPORT INFORMATION
  Report Type: 
  Country: None (occurrence: None)
  Receive Date: 20050831
  Receipt Date: 20050816
  Transmission Date: 20060218
  Serious: Yes (Other)
  Sender: FDA-Public Use
  Company Number: S05-CAN-03153-01

PATIENT
  Age: 72 Year
  Sex: Male

DRUGS (5)
  1. CITALOPRAM [Suspect]
  2. NEURONTIN [Suspect]
     Dosage: 1800 MG DAILY
  3. RISPERDAL [Suspect]
  4. SEROQUEL [Suspect]
  5. LOXAPINE [Concomitant]

REACTIONS (5)
  - CONFUSIONAL STATE [None]
  - DEPRESSION [None]
  - DRUG INTERACTION [None]
  - PATHOLOGICAL FRACTURE [None]
  - PSYCHOTIC DISORDER [None]
